FAERS Safety Report 25086583 (Version 1)
Quarter: 2025Q1

REPORT INFORMATION
  Report Type: Report from Study
  Country: BR (occurrence: BR)
  Receive Date: 20250317
  Receipt Date: 20250317
  Transmission Date: 20250409
  Serious: Yes (Other)
  Sender: ABBVIE
  Company Number: BR-ABBVIE-6177066

PATIENT
  Age: 53 Year
  Sex: Female

DRUGS (1)
  1. SKYRIZI [Suspect]
     Active Substance: RISANKIZUMAB-RZAA
     Indication: Psoriasis
     Route: 058
     Dates: start: 20220106

REACTIONS (7)
  - Infarction [Unknown]
  - Pruritus [Unknown]
  - Injection site haemorrhage [Unknown]
  - Blister [Unknown]
  - Erythema [Recovered/Resolved]
  - Mass [Unknown]
  - Surgery [Unknown]

NARRATIVE: CASE EVENT DATE: 20220101
